FAERS Safety Report 5828552-5 (Version None)
Quarter: 2008Q3

REPORT INFORMATION
  Report Type: 
  Country: None (occurrence: None)
  Receive Date: 20080731
  Receipt Date: 20080724
  Transmission Date: 20090109
  Serious: Yes (Other)
  Sender: FDA-Public Use
  Company Number: FR-ASTRAZENECA-2008CG01127

PATIENT
  Age: 34323 Day
  Sex: Female
  Weight: 81 kg

DRUGS (12)
  1. MOPRAL [Suspect]
     Route: 048
  2. MINIRIN [Suspect]
     Indication: POLLAKIURIA
     Route: 045
     Dates: start: 20071020, end: 20071110
  3. LASIX [Suspect]
     Indication: CARDIAC FAILURE
     Route: 048
     Dates: end: 20071028
  4. LASIX [Suspect]
     Route: 048
     Dates: start: 20071029
  5. PERINDOPRIL ERBUMINE [Suspect]
     Indication: HYPERTENSION
     Route: 048
  6. ASPIRIN [Concomitant]
  7. VASTAREL [Concomitant]
  8. OROCAL D3 [Concomitant]
  9. TEMESTA [Concomitant]
  10. PROPOXYPHENE HCL AND ACETAMINOPHEN [Concomitant]
  11. TIAPRIDAL [Concomitant]
     Dates: start: 20070910
  12. IXPRIM [Concomitant]

REACTIONS (4)
  - FALL [None]
  - HYPONATRAEMIA [None]
  - OEDEMA PERIPHERAL [None]
  - OFF LABEL USE [None]
